FAERS Safety Report 8839681 (Version 1)
Quarter: 2012Q4

REPORT INFORMATION
  Report Type: 
  Country: AR (occurrence: AR)
  Receive Date: 20121015
  Receipt Date: 20121015
  Transmission Date: 20130627
  Serious: Yes (Other)
  Sender: FDA-Public Use
  Company Number: PHHY2012AR090878

PATIENT
  Sex: Female

DRUGS (1)
  1. EXFORGE [Suspect]
     Indication: BLOOD PRESSURE ABNORMAL
     Dosage: 1 DF(160 mg vals, 5 mg amlo), daily
     Dates: start: 201101

REACTIONS (2)
  - Cerebrovascular accident [Recovering/Resolving]
  - Arterial occlusive disease [Recovering/Resolving]
